APPROVED DRUG PRODUCT: ISOTRETINOIN
Active Ingredient: ISOTRETINOIN
Strength: 20MG
Dosage Form/Route: CAPSULE;ORAL
Application: A216097 | Product #002 | TE Code: AB2
Applicant: AMNEAL PHARMACEUTICALS OF NY LLC
Approved: Oct 7, 2025 | RLD: No | RS: No | Type: RX